FAERS Safety Report 6426640-6 (Version None)
Quarter: 2009Q4

REPORT INFORMATION
  Report Type: 
  Country: None (occurrence: None)
  Receive Date: 20091104
  Receipt Date: 20091026
  Transmission Date: 20100525
  Serious: Yes (Hospitalization)
  Sender: FDA-Public Use
  Company Number: GXKR2009GB11733

PATIENT
  Age: 33 Year
  Sex: Female
  Weight: 60 kg

DRUGS (5)
  1. METOCLOPRAMIDE (NGX) [Suspect]
     Indication: NAUSEA
     Dosage: 60 MG, TID
     Route: 048
  2. METOCLOPRAMIDE (NGX) [Interacting]
     Indication: DYSPEPSIA
  3. PREDNISOLONE [Interacting]
     Indication: WEGENER'S GRANULOMATOSIS
     Dosage: 30 MG, UNK
     Route: 048
     Dates: start: 20081003
  4. BINOVUM [Concomitant]
     Dosage: 1 DF, UNK
     Route: 048
  5. OMEPRAZOLE [Concomitant]
     Dosage: 20 MG, UNK
     Route: 048

REACTIONS (2)
  - DRUG INTERACTION [None]
  - DYSTONIA [None]
